FAERS Safety Report 4544283-6 (Version None)
Quarter: 2004Q4

REPORT INFORMATION
  Report Type: 
  Country: None (occurrence: None)
  Receive Date: 20041230
  Receipt Date: 20041224
  Transmission Date: 20050328
  Serious: Yes (Hospitalization)
  Sender: FDA-Public Use
  Company Number: K200401965

PATIENT
  Age: 75 Year
  Sex: Female

DRUGS (1)
  1. ALTACE [Suspect]
     Dates: start: 20040630

REACTIONS (1)
  - CARDIAC PACEMAKER INSERTION [None]
